FAERS Safety Report 8506223-4 (Version None)
Quarter: 2012Q3

REPORT INFORMATION
  Report Type: 
  Country: None (occurrence: None)
  Receive Date: 20120702
  Receipt Date: 20120625
  Transmission Date: 20120928
  Serious: Yes (Hospitalization)
  Sender: FDA-Public Use
  Company Number: DSA_58134_2012

PATIENT
  Sex: Female
  Weight: 78.0187 kg

DRUGS (2)
  1. VASOTEC [Suspect]
     Indication: HEART RATE IRREGULAR
     Dosage: (20 MG BID ORAL)
     Route: 048
  2. MANY CONCOMITANT DRUGS [Concomitant]

REACTIONS (4)
  - CHEST PAIN [None]
  - TABLET PHYSICAL ISSUE [None]
  - INCORRECT PRODUCT STORAGE [None]
  - PRODUCT QUALITY ISSUE [None]
